FAERS Safety Report 20572488 (Version 1)
Quarter: 2022Q1

REPORT INFORMATION
  Report Type: Spontaneous
  Country: ES (occurrence: ES)
  Receive Date: 20220309
  Receipt Date: 20220309
  Transmission Date: 20220423
  Serious: Yes (Other)
  Sender: FDA-Public Use
  Company Number: ES-SA-2022SA069519

PATIENT
  Age: 8 Month

DRUGS (3)
  1. VIGABATRIN [Suspect]
     Active Substance: VIGABATRIN
     Indication: Infantile spasms
     Dosage: REACHING A MAXIMUM DOSE OF 100 MG/KG
     Route: 065
  2. VALPROIC ACID [Concomitant]
     Active Substance: VALPROIC ACID
     Indication: Infantile spasms
     Dosage: UNK
     Route: 065
  3. ACTH [Concomitant]
     Active Substance: CORTICOTROPIN
     Indication: Infantile spasms
     Route: 065

REACTIONS (2)
  - Cytotoxic oedema [Unknown]
  - Hyperintensity in brain deep nuclei [Unknown]
